FAERS Safety Report 9754389 (Version 2)
Quarter: 2014Q1

REPORT INFORMATION
  Report Type: Spontaneous
  Country: FR (occurrence: FR)
  Receive Date: 20131213
  Receipt Date: 20140220
  Transmission Date: 20141002
  Serious: Yes (Other)
  Sender: FDA-Public Use
  Company Number: FR-BRISTOL-MYERS SQUIBB COMPANY-19897669

PATIENT
  Sex: 0

DRUGS (1)
  1. REYATAZ [Suspect]

REACTIONS (2)
  - Neoplasm malignant [Unknown]
  - Dysphagia [Unknown]
